FAERS Safety Report 13354891 (Version 3)
Quarter: 2017Q4

REPORT INFORMATION
  Report Type: Spontaneous
  Country: JP (occurrence: JP)
  Receive Date: 20170321
  Receipt Date: 20171205
  Transmission Date: 20180320
  Serious: Yes (Hospitalization)
  Sender: FDA-Public Use
  Company Number: JP-JNJFOC-20170317973

PATIENT
  Age: 70 Year
  Sex: Female

DRUGS (2)
  1. SIMPONI [Suspect]
     Active Substance: GOLIMUMAB
     Indication: RHEUMATOID ARTHRITIS
     Dosage: NUMBER OF ADMINISTRATIONS WAS 45 TIMES AT A DOSE
     Route: 058
  2. METHOTREXATE. [Concomitant]
     Active Substance: METHOTREXATE
     Dosage: THE NUMBER OF ADMINISTRATION WAS 45 TIMES AT A DOSE OF 50MG
     Route: 048

REACTIONS (1)
  - Plasma cell myeloma [Recovered/Resolved]
